FAERS Safety Report 4454591-5 (Version None)
Quarter: 2004Q3

REPORT INFORMATION
  Report Type: 
  Country: None (occurrence: None)
  Receive Date: 20040920
  Receipt Date: 20040920
  Transmission Date: 20050211
  Serious: Yes (Other)
  Sender: FDA-Public Use
  Company Number: None

PATIENT
  Age: 38 Year
  Sex: Female
  Weight: 63 kg

DRUGS (11)
  1. TACROLIMUS  2.5MG  8-12 HRS [Suspect]
     Indication: PANCREAS TRANSPLANT
     Dosage: 2.5 MG Q 12HRS
     Dates: start: 20040315, end: 20040609
  2. TACROLIMUS  2.5MG  8-12 HRS [Suspect]
     Indication: RENAL TRANSPLANT
     Dosage: 2.5 MG Q 12HRS
     Dates: start: 20040315, end: 20040609
  3. TACROLIMUS [Concomitant]
  4. BACTRIM DS [Concomitant]
  5. COLACE [Concomitant]
  6. BISACODYL [Concomitant]
  7. PREDNISONE [Concomitant]
  8. KLONOPIN [Concomitant]
  9. METOCLOPRAMIDE [Concomitant]
  10. VALCYTE [Concomitant]
  11. ZANTAC [Concomitant]

REACTIONS (4)
  - BLOOD CREATININE INCREASED [None]
  - DRUG LEVEL INCREASED [None]
  - NAUSEA [None]
  - VOMITING [None]
